FAERS Safety Report 6534175-5 (Version None)
Quarter: 2010Q1

REPORT INFORMATION
  Report Type: 
  Country: None (occurrence: None)
  Receive Date: 20100112
  Receipt Date: 20091231
  Transmission Date: 20100710
  Serious: Yes (Hospitalization)
  Sender: FDA-Public Use
  Company Number: US-JNJFOC-20100101664

PATIENT
  Sex: Female
  Weight: 97.52 kg

DRUGS (6)
  1. TYLENOL (CAPLET) [Suspect]
     Indication: OSTEOPOROSIS
     Route: 048
  2. TYLENOL (CAPLET) [Suspect]
     Indication: ARTHRITIS
     Route: 048
  3. FLEXERIL [Concomitant]
  4. LYRICA [Concomitant]
  5. OMEPRAZOLE [Concomitant]
  6. LORAZEPAM [Concomitant]

REACTIONS (4)
  - OEDEMA PERIPHERAL [None]
  - PRODUCT QUALITY ISSUE [None]
  - PRURITUS [None]
  - URTICARIA [None]
